FAERS Safety Report 5385369-6 (Version None)
Quarter: 2007Q3

REPORT INFORMATION
  Report Type: 
  Country: None (occurrence: None)
  Receive Date: 20070709
  Receipt Date: 20070626
  Transmission Date: 20080115
  Serious: Yes (Death, Life-Threatening, Hospitalization)
  Sender: FDA-Public Use
  Company Number: 2007-00481

PATIENT
  Age: 80 Year
  Sex: Female
  Weight: 41 kg

DRUGS (45)
  1. VELCADE [Suspect]
     Indication: MULTIPLE MYELOMA
     Dosage: 1.30 MG/M2, INTRAVENOUS
     Route: 042
     Dates: start: 20070119, end: 20070122
  2. DECADRON [Concomitant]
  3. ALFAROL (ALFACALCIDOL) [Concomitant]
  4. SLOW-K [Concomitant]
  5. CARVEDILOL [Concomitant]
  6. ALDACTONE [Concomitant]
  7. ENALAPRIL MALEATE [Concomitant]
  8. LASIX [Concomitant]
  9. CLARITHROMYCIN [Concomitant]
  10. SERENACE (HALOPERIDOL) [Concomitant]
  11. SULFAMETHOXAZOLE + TRIMETHOPRIM [Concomitant]
  12. PURSENNID (SENNA LEAF) [Concomitant]
  13. MAGNESIUM OXIDE (MAGNESIUM OXIDE) [Concomitant]
  14. CEFAZOLIN SODIUM [Concomitant]
  15. EXACIN (ISEPAMICIN SULFATE [Concomitant]
  16. NEU-UP (NARTOGRASTIM) [Concomitant]
  17. ASPARA K (ASPARTATE POTASSIUM) [Concomitant]
  18. KYTRIL [Concomitant]
  19. SODIUM BICARBONATE [Concomitant]
  20. SOLU-MEDROL [Concomitant]
  21. GANCICLOVIR [Concomitant]
  22. MEROPEN (MEROPENEM) [Concomitant]
  23. AMIKACIN SULFATE [Concomitant]
  24. PREDNISOLONE [Concomitant]
  25. SOLDACTONE (POTASSIUM CANRENOATE [Concomitant]
  26. PROCANIN (PROCAINE HYDROCHLORIDE) [Concomitant]
  27. MINOCYCLINE HCL [Concomitant]
  28. ALBUMIN (HUMAN) [Concomitant]
  29. HABEKACIN (ARBEKACIN) [Concomitant]
  30. FAMOTIDINE [Concomitant]
  31. ADONA (CARBAZOCHROME SODIUM SULFONATE) [Concomitant]
  32. TRANSAMIN (TRANEXAMIC ACID) [Concomitant]
  33. TARGOCID [Concomitant]
  34. CALCICOL (CALCIUM GLUCONATE) [Concomitant]
  35. HUMULIN (INSULIN HUMAN, INSULIN ISOPHANE, HUMAN BIOSYNTHETIC) [Concomitant]
  36. FUNGIZONE [Concomitant]
  37. SERENACE (HALOPERIDOL) [Concomitant]
  38. KAYTWO (MENATETRENONE) [Concomitant]
  39. DORMICUM FOR INJECTION (MIDAZOLAM HYDROCHLORIDE) [Concomitant]
  40. DOPAMINE HYDROCHLORIDE [Concomitant]
  41. TIENAM (IMIPENEM, CILASTATIN) [Concomitant]
  42. FUNGARD [Concomitant]
  43. PRODIF [Concomitant]
  44. PREDNISOLONE [Concomitant]
  45. DICLOFENAC SODIUM [Concomitant]

REACTIONS (34)
  - ADRENAL ATROPHY [None]
  - AORTIC ARTERIOSCLEROSIS [None]
  - ARTERIOSCLEROSIS CORONARY ARTERY [None]
  - ASCITES [None]
  - BACTERIAL INFECTION [None]
  - BLOOD PRESSURE DECREASED [None]
  - BRONCHOPNEUMONIA [None]
  - CARDIAC HYPERTROPHY [None]
  - CARDIOMEGALY [None]
  - CARDIOPULMONARY FAILURE [None]
  - CYTOMEGALOVIRUS ANTIGEN POSITIVE [None]
  - DERMATITIS CONTACT [None]
  - DIVERTICULUM INTESTINAL [None]
  - HYPOKALAEMIA [None]
  - INTERSTITIAL LUNG DISEASE [None]
  - INTESTINAL ISCHAEMIA [None]
  - MELAENA [None]
  - NEPHROSCLEROSIS [None]
  - NEUTROPHIL COUNT DECREASED [None]
  - OSTEOPOROSIS [None]
  - OXYGEN SATURATION DECREASED [None]
  - PERICARDIAL EFFUSION [None]
  - PLEURAL EFFUSION [None]
  - PNEUMOCONIOSIS [None]
  - PNEUMONIA BACTERIAL [None]
  - PNEUMONIA FUNGAL [None]
  - RENAL ARTERY ARTERIOSCLEROSIS [None]
  - RENAL ATROPHY [None]
  - RENAL FAILURE ACUTE [None]
  - SHOCK HAEMORRHAGIC [None]
  - SPINAL COMPRESSION FRACTURE [None]
  - SPUTUM PURULENT [None]
  - URINARY BLADDER HAEMORRHAGE [None]
  - WEIGHT INCREASED [None]
